FAERS Safety Report 15194074 (Version 1)
Quarter: 2020Q3

REPORT INFORMATION
  Report Type: Other
  Country: AT (occurrence: AT)
  Receive Date: 20180725
  Receipt Date: 20180725
  Transmission Date: 20201104
  Serious: Yes (Other)
  Sender: FDA-Public Use
  Company Number: AT-ACI HEALTHCARE LIMITED-2052707

PATIENT
  Age: 80 Year
  Sex: Female

DRUGS (23)
  1. PREDNISONE. [Suspect]
     Active Substance: PREDNISONE
     Route: 065
  2. BENSERAZIDE [Suspect]
     Active Substance: BENSERAZIDE
     Route: 065
  3. ATORVASTATIN [Suspect]
     Active Substance: ATORVASTATIN
     Route: 065
  4. IBANDRONIC ACID. [Suspect]
     Active Substance: IBANDRONIC ACID
     Route: 065
  5. ACETYLCYSTEINE. [Suspect]
     Active Substance: ACETYLCYSTEINE
     Route: 065
  6. THEOPHYLLINE [Suspect]
     Active Substance: THEOPHYLLINE ANHYDROUS
     Route: 065
  7. LEVODOPA [Suspect]
     Active Substance: LEVODOPA
     Route: 065
  8. TIOTROPRIUM [Suspect]
     Active Substance: TIOTROPIUM
     Route: 065
  9. SALMETEROL [Suspect]
     Active Substance: SALMETEROL
     Route: 065
  10. FENOTEROL [Suspect]
     Active Substance: FENOTEROL
     Route: 065
  11. IPRATROPRIUM [Suspect]
     Active Substance: IPRATROPIUM
     Route: 065
  12. DICLOFENAC [Suspect]
     Active Substance: DICLOFENAC
     Route: 065
  13. DULOXETINE. [Suspect]
     Active Substance: DULOXETINE
     Route: 065
  14. VITAMIN?D [Suspect]
     Active Substance: VITAMIN D NOS
     Route: 065
  15. OMEPRAZOLE. [Suspect]
     Active Substance: OMEPRAZOLE
     Route: 065
  16. GABAPENTIN. [Suspect]
     Active Substance: GABAPENTIN
     Indication: PAIN
     Route: 065
  17. TRAMADOL. [Suspect]
     Active Substance: TRAMADOL
     Route: 065
  18. FLUTICASONE. [Suspect]
     Active Substance: FLUTICASONE
     Route: 065
  19. LEVOTHYROXINE. [Suspect]
     Active Substance: LEVOTHYROXINE
     Route: 065
  20. ALGEDRATE GEL [Suspect]
     Active Substance: ALGELDRATE
     Route: 065
  21. PRAMIPEXOLE. [Suspect]
     Active Substance: PRAMIPEXOLE
     Route: 065
  22. DIOSMIN [Suspect]
     Active Substance: DIOSMIN
     Route: 065
  23. HESPERIDIN [Suspect]
     Active Substance: HESPERIDIN
     Route: 065

REACTIONS (1)
  - Delirium [Unknown]
